FAERS Safety Report 14371515 (Version 4)
Quarter: 2018Q1

REPORT INFORMATION
  Report Type: Report from Study
  Country: None (occurrence: BR)
  Receive Date: 20180110
  Receipt Date: 20180228
  Transmission Date: 20180509
  Serious: Yes (Death, Hospitalization, Other)
  Sender: FDA-Public Use
  Company Number: BR-ABBVIE-18K-020-2217144-00

PATIENT
  Sex: Female
  Weight: 85 kg

DRUGS (21)
  1. DIACERHEIN [Concomitant]
     Indication: ARTHRITIS
  2. RISEDROSS [Concomitant]
     Active Substance: RISEDRONATE SODIUM
     Indication: BONE DISORDER
  3. TRAMADOL. [Concomitant]
     Active Substance: TRAMADOL
     Indication: PAIN
  4. CITALOPRAM [Concomitant]
     Active Substance: CITALOPRAM HYDROBROMIDE
     Indication: DEPRESSION
  5. VELIJA [Concomitant]
     Active Substance: DULOXETINE HYDROCHLORIDE
     Indication: FIBROMYALGIA
  6. DIUPRESS [Concomitant]
     Indication: PERIPHERAL SWELLING
  7. CALCIUM [Concomitant]
     Active Substance: CALCIUM
     Indication: BONE DISORDER
  8. FOLIC ACID. [Concomitant]
     Active Substance: FOLIC ACID
     Indication: ANAEMIA
  9. OMEGA 3 [Concomitant]
     Active Substance: OMEGA-3 FATTY ACIDS
     Indication: PRODUCT USED FOR UNKNOWN INDICATION
  10. LEFLUNOMIDE. [Concomitant]
     Active Substance: LEFLUNOMIDE
     Indication: RHEUMATOID ARTHRITIS
  11. PRELONE [Concomitant]
     Active Substance: PREDNISOLONE
     Indication: ARTHRITIS
  12. PANTOPRAZOLE [Concomitant]
     Active Substance: PANTOPRAZOLE
     Indication: PROPHYLAXIS
  13. AMITRIPTYLINE [Concomitant]
     Active Substance: AMITRIPTYLINE
     Indication: DEPRESSION
  14. PREDNISONE. [Concomitant]
     Active Substance: PREDNISONE
     Indication: RHEUMATOID ARTHRITIS
  15. HUMIRA [Suspect]
     Active Substance: ADALIMUMAB
     Route: 058
     Dates: end: 201801
  16. T3 [Concomitant]
     Active Substance: LIOTHYRONINE SODIUM
     Indication: THYROID DISORDER
  17. OXYCONTIN [Concomitant]
     Active Substance: OXYCODONE HYDROCHLORIDE
     Indication: PAIN
  18. HUMIRA [Suspect]
     Active Substance: ADALIMUMAB
     Indication: RHEUMATOID ARTHRITIS
     Route: 058
     Dates: start: 20171002, end: 20171225
  19. PRELONE [Concomitant]
     Active Substance: PREDNISOLONE
     Indication: LUNG DISORDER
  20. LYRICA [Concomitant]
     Active Substance: PREGABALIN
     Indication: PAIN
  21. FORASEQ [Concomitant]
     Active Substance: BUDESONIDE\FORMOTEROL FUMARATE
     Indication: LUNG DISORDER

REACTIONS (10)
  - Nerve root compression [Fatal]
  - Spinal osteoarthritis [Fatal]
  - Septic shock [Fatal]
  - Intervertebral disc disorder [Unknown]
  - Pain [Fatal]
  - Mobility decreased [Not Recovered/Not Resolved]
  - Full blood count abnormal [Unknown]
  - Blood test abnormal [Unknown]
  - Endotracheal intubation [Fatal]
  - Infection [Fatal]

NARRATIVE: CASE EVENT DATE: 2017
